FAERS Safety Report 6535474-3 (Version None)
Quarter: 2010Q1

REPORT INFORMATION
  Report Type: 
  Country: None (occurrence: None)
  Receive Date: 20100113
  Receipt Date: 20100106
  Transmission Date: 20100710
  Serious: Yes (Other)
  Sender: FDA-Public Use
  Company Number: FR-ASTRAZENECA-2009SE05415

PATIENT
  Age: 61 Year
  Sex: Female
  Weight: 75 kg

DRUGS (3)
  1. CRESTOR [Suspect]
     Indication: HYPERCHOLESTEROLAEMIA
     Route: 048
     Dates: start: 20080826, end: 20090813
  2. NOROXIN [Suspect]
     Indication: INFECTION
     Dosage: 2 TABLET PER DAY DURING 10
     Route: 065
     Dates: start: 20081124
  3. NOROXIN [Suspect]
     Dosage: 2 TABLET PER DAY DURING 10
     Route: 065
     Dates: start: 20090518

REACTIONS (1)
  - TENDONITIS [None]
